FAERS Safety Report 21410182 (Version 1)
Quarter: 2022Q4

REPORT INFORMATION
  Report Type: Spontaneous
  Country: US (occurrence: US)
  Receive Date: 20221005
  Receipt Date: 20221005
  Transmission Date: 20230113
  Serious: No
  Sender: FDA-Public Use
  Company Number: US-ALLERGAN-2223965US

PATIENT
  Sex: Male

DRUGS (2)
  1. UBRELVY [Suspect]
     Active Substance: UBROGEPANT
     Indication: Product used for unknown indication
     Dosage: UNK
  2. NURTEC ODT [Concomitant]
     Active Substance: RIMEGEPANT SULFATE
     Dosage: UNK

REACTIONS (2)
  - Fatigue [Unknown]
  - Migraine [Unknown]
